FAERS Safety Report 8212682-7 (Version None)
Quarter: 2012Q1

REPORT INFORMATION
  Report Type: 
  Country: None (occurrence: None)
  Receive Date: 20120315
  Receipt Date: 20120302
  Transmission Date: 20120608
  Serious: Yes (Other)
  Sender: FDA-Public Use
  Company Number: US-AMGEN-USASP2012014286

PATIENT
  Age: 72 Year
  Sex: Female

DRUGS (1)
  1. ENBREL [Suspect]
     Indication: RHEUMATOID ARTHRITIS
     Dosage: 50 MG, QWK
     Dates: start: 20110426

REACTIONS (15)
  - ARTHRALGIA [None]
  - FALL [None]
  - SCOLIOSIS [None]
  - CONTUSION [None]
  - PYREXIA [None]
  - HYPERHIDROSIS [None]
  - DRY MOUTH [None]
  - PARANASAL SINUS HYPERSECRETION [None]
  - VISION BLURRED [None]
  - DIZZINESS [None]
  - COUGH [None]
  - ANAEMIA [None]
  - RED BLOOD CELL COUNT DECREASED [None]
  - SPINAL CORD COMPRESSION [None]
  - WEIGHT DECREASED [None]
